FAERS Safety Report 9928372 (Version 1)
Quarter: 2014Q1

REPORT INFORMATION
  Report Type: Spontaneous
  Country: GB (occurrence: GB)
  Receive Date: 20140227
  Receipt Date: 20140227
  Transmission Date: 20141002
  Serious: Yes (Hospitalization)
  Sender: FDA-Public Use
  Company Number: GB-PFIZER INC-2014052261

PATIENT
  Age: 81 Year
  Sex: Female
  Weight: 61 kg

DRUGS (13)
  1. DOXYCYCLINE MONOHYDRATE [Suspect]
     Indication: PNEUMONIA
     Dosage: 100 MG, 1X/DAY
     Route: 048
     Dates: start: 20140206
  2. PREDNISOLONE [Suspect]
     Indication: PNEUMONIA
     Dosage: MORNING
     Route: 048
     Dates: start: 20140205, end: 20140212
  3. AMLODIPINE [Concomitant]
  4. ACETYLSALICYLIC ACID [Concomitant]
     Dosage: WITHELD
     Dates: end: 2014
  5. CO-CODAMOL [Concomitant]
  6. FERROUS FUMARATE [Concomitant]
  7. FOLIC ACID [Concomitant]
  8. LANSOPRAZOLE [Concomitant]
     Dosage: 15 MG, 1X/DAY
  9. RAMIPRIL [Concomitant]
  10. SALBUTAMOL [Concomitant]
     Dosage: UNK
  11. SERETIDE [Concomitant]
     Dosage: UNK
  12. SIMVASTATIN [Concomitant]
  13. TIOTROPIUM [Concomitant]

REACTIONS (1)
  - Haemoglobin decreased [Unknown]
